FAERS Safety Report 23403213 (Version 1)
Quarter: 2024Q1

REPORT INFORMATION
  Report Type: Other
  Country: CN (occurrence: None)
  Receive Date: 20240116
  Receipt Date: 20240116
  Transmission Date: 20240410
  Serious: Yes (Hospitalization)
  Sender: FDA-Public Use
  Company Number: CN-ROCHE-3490717

PATIENT
  Age: 20 Month
  Sex: Male
  Weight: 12 kg

DRUGS (1)
  1. HEMLIBRA [Suspect]
     Active Substance: EMICIZUMAB-KXWH
     Indication: Haemophilia
     Route: 058
     Dates: start: 20230704

REACTIONS (1)
  - Extradural haematoma [Recovering/Resolving]

NARRATIVE: CASE EVENT DATE: 20240101
